FAERS Safety Report 14458682 (Version 1)
Quarter: 2018Q1

REPORT INFORMATION
  Report Type: Spontaneous
  Country: US (occurrence: US)
  Receive Date: 20180129
  Receipt Date: 20180129
  Transmission Date: 20180509
  Serious: Yes (Hospitalization)
  Sender: FDA-Public Use
  Company Number: None

PATIENT
  Age: 19 Year
  Sex: Male

DRUGS (6)
  1. PULMOZYME [Suspect]
     Active Substance: DORNASE ALFA
     Indication: FIBROSIS
     Route: 055
     Dates: start: 20170812
  2. SODIUM CHLORIDE. [Concomitant]
     Active Substance: SODIUM CHLORIDE
  3. TOBRAMYCIN 300MG/5ML [Suspect]
     Active Substance: TOBRAMYCIN
     Indication: SEPSIS
     Dosage: 300MG 15 ML BID, INHALATION
     Route: 055
     Dates: start: 20140217
  4. TOBRAMYCIN 300MG/5ML [Suspect]
     Active Substance: TOBRAMYCIN
     Indication: FIBROSIS
     Dosage: 300MG 15 ML BID, INHALATION
     Route: 055
     Dates: start: 20140217
  5. PULMOZYME [Suspect]
     Active Substance: DORNASE ALFA
     Indication: SEPSIS
     Route: 055
     Dates: start: 20170812
  6. ALBUTEROL. [Concomitant]
     Active Substance: ALBUTEROL

REACTIONS (2)
  - Nasopharyngitis [None]
  - Chest pain [None]

NARRATIVE: CASE EVENT DATE: 20180122
